FAERS Safety Report 6071909-0 (Version None)
Quarter: 2009Q1

REPORT INFORMATION
  Report Type: 
  Country: None (occurrence: None)
  Receive Date: 20090210
  Receipt Date: 20090130
  Transmission Date: 20090719
  Serious: Yes (Hospitalization)
  Sender: FDA-Public Use
  Company Number: US-CELGENEUS-163-21880-09020287

PATIENT
  Sex: Female

DRUGS (2)
  1. REVLIMID [Suspect]
     Indication: MULTIPLE MYELOMA
     Route: 048
     Dates: start: 20081014
  2. REVLIMID [Suspect]
     Route: 048
     Dates: start: 20070716, end: 20070801

REACTIONS (3)
  - PERICARDIAL EFFUSION [None]
  - RENAL FAILURE [None]
  - SEPSIS [None]
